FAERS Safety Report 19474652 (Version 3)
Quarter: 2021Q3

REPORT INFORMATION
  Report Type: Spontaneous
  Country: US (occurrence: US)
  Receive Date: 20210629
  Receipt Date: 20210804
  Transmission Date: 20211014
  Serious: Yes (Other)
  Sender: FDA-Public Use
  Company Number: US-ORGANON-O2106USA002332

PATIENT
  Age: 22 Year
  Sex: Female

DRUGS (1)
  1. NEXPLANON [Suspect]
     Active Substance: ETONOGESTREL
     Dosage: ONE IMPLANT EVERY 3 YEARS, LEFT ARM
     Dates: start: 20200622, end: 20210614

REACTIONS (5)
  - Device deployment issue [Recovered/Resolved]
  - Device issue [Recovered/Resolved]
  - Gun shot wound [Unknown]
  - Complication associated with device [Recovered/Resolved]
  - Device dislocation [Recovered/Resolved]

NARRATIVE: CASE EVENT DATE: 20200622
